FAERS Safety Report 9397556 (Version 1)
Quarter: 2013Q3

REPORT INFORMATION
  Report Type: Report from Study
  Country: FR (occurrence: FR)
  Receive Date: 20130712
  Receipt Date: 20130712
  Transmission Date: 20140515
  Serious: Yes (Death)
  Sender: FDA-Public Use
  Company Number: FR-SANOFI-AVENTIS-2013SA070239

PATIENT
  Age: 57 Year
  Sex: Male
  Weight: 57.5 kg

DRUGS (3)
  1. DOCETAXEL [Suspect]
     Indication: PRODUCT USED FOR UNKNOWN INDICATION
     Route: 065
     Dates: start: 20130415, end: 20130415
  2. CISPLATIN [Suspect]
     Indication: PRODUCT USED FOR UNKNOWN INDICATION
     Route: 065
     Dates: start: 20130415, end: 20130415
  3. FLUOROURACIL [Suspect]
     Indication: PRODUCT USED FOR UNKNOWN INDICATION
     Dosage: ON DAY 1 TO DAY 5, 5 DAYS
     Route: 065
     Dates: start: 20130415, end: 20130419

REACTIONS (1)
  - Death [Fatal]
